FAERS Safety Report 18339313 (Version 1)
Quarter: 2020Q4

REPORT INFORMATION
  Report Type: Spontaneous
  Country: US (occurrence: US)
  Receive Date: 20201002
  Receipt Date: 20201002
  Transmission Date: 20210113
  Serious: Yes (Death)
  Sender: FDA-Public Use
  Company Number: US-BAYER-2020-207802

PATIENT
  Age: 60 Year
  Sex: Female

DRUGS (1)
  1. ALEVE [Suspect]
     Active Substance: NAPROXEN SODIUM
     Indication: PAIN
     Dosage: 6 DF
     Route: 048

REACTIONS (2)
  - Incorrect dose administered [Fatal]
  - Abdominal pain upper [Fatal]

NARRATIVE: CASE EVENT DATE: 20200828
